FAERS Safety Report 6997203 (Version 12)
Quarter: 2013Q3

REPORT INFORMATION
  Report Type: Spontaneous
  Country: US (occurrence: US)
  Receive Date: 20090518
  Receipt Date: 20130822
  Transmission Date: 20140515
  Serious: Yes (Hospitalization, Disabling, Other)
  Sender: FDA-Public Use
  Company Number: PHEH2009US04653

PATIENT
  Sex: Female

DRUGS (33)
  1. AREDIA [Suspect]
     Route: 042
     Dates: start: 200212, end: 200805
  2. CHEMOTHERAPEUTICS NOS [Suspect]
  3. HEPARIN [Concomitant]
  4. ATENOLOL [Concomitant]
     Indication: HYPERTENSION
  5. GLUCOPHAGE [Concomitant]
     Indication: DIABETES MELLITUS
  6. INSULIN [Concomitant]
     Indication: DIABETES MELLITUS
  7. XELODA [Concomitant]
  8. FASLODEX [Concomitant]
  9. ZOCOR ^DIECKMANN^ [Concomitant]
  10. ACETAMINOPHEN [Concomitant]
  11. LASIX [Concomitant]
  12. ALLOPURINOL [Concomitant]
     Dosage: 100 MG, QOD
     Route: 048
  13. BENICAR [Concomitant]
     Route: 048
  14. LIPITOR [Concomitant]
     Dosage: 10 MG, QD
     Route: 048
  15. MAGNESIUM OXIDE [Concomitant]
     Dosage: 400 MG, BID
     Route: 048
  16. NOVOLOG [Concomitant]
     Dosage: 25 U, TID
  17. SYNTHROID [Concomitant]
     Route: 048
  18. TRICOR [Concomitant]
     Dosage: 145 MG, QD
     Route: 048
  19. ALPRAZOLAM [Concomitant]
     Dosage: 0.25 MG, PRN
  20. COLCHICINE [Concomitant]
     Dosage: 0.6 MG,
     Route: 048
  21. HUMALOG [Concomitant]
  22. ZOLOFT (SERTRALINE HYDROCHLORIDE) [Concomitant]
     Dosage: 50 MG, QD
     Route: 048
  23. LEVAQUIN [Concomitant]
     Dosage: 500 MG ONE DAILY
  24. PROAIR HFA (ALBUTEROL SULFATE) INHALATION AEROSOL [Concomitant]
     Dosage: 90 UG, UNK
  25. AMOXICILLIN [Concomitant]
     Dosage: 500 MG, UNK
  26. PERCOCET [Concomitant]
     Dosage: 5 MG, UNK
  27. ERGOCALCIFEROL [Concomitant]
  28. PAROXETINE [Concomitant]
  29. TAXOTERE [Concomitant]
  30. DOCETAXEL [Concomitant]
  31. KEFLEX [Concomitant]
     Dosage: 500 MG, UNK
  32. ARANESP [Concomitant]
  33. DEXAMETHASONE [Concomitant]
     Dosage: 10 MG, UNK
     Route: 042

REACTIONS (82)
  - Osteonecrosis of jaw [Unknown]
  - Injury [Unknown]
  - Pain [Unknown]
  - Anxiety [Unknown]
  - Hypoaesthesia [Unknown]
  - Exposed bone in jaw [Unknown]
  - Tooth loss [Unknown]
  - Purulent discharge [Unknown]
  - Physical disability [Unknown]
  - Dyspnoea [Recovering/Resolving]
  - Diabetic ketoacidosis [Unknown]
  - Cardiomegaly [Unknown]
  - Cholelithiasis [Unknown]
  - Metastases to bone [Unknown]
  - Osteomyelitis [Unknown]
  - Jaw fracture [Unknown]
  - Drug hypersensitivity [Unknown]
  - Primary sequestrum [Unknown]
  - Hypokalaemia [Recovered/Resolved]
  - Hypomagnesaemia [Recovered/Resolved]
  - Chronic sinusitis [Unknown]
  - Upper respiratory tract infection [Recovered/Resolved]
  - Ascites [Unknown]
  - Obesity [Unknown]
  - Metastases to lung [Unknown]
  - Metastases to skin [Unknown]
  - Hepatic steatosis [Unknown]
  - Dehydration [Unknown]
  - Bone pain [Unknown]
  - Vomiting [Unknown]
  - Nausea [Unknown]
  - Weight decreased [Unknown]
  - Oedema peripheral [Unknown]
  - Fatigue [Unknown]
  - Hypoglycaemia [Unknown]
  - Hypothyroidism [Unknown]
  - Hypercholesterolaemia [Unknown]
  - Gout [Unknown]
  - Asthma [Unknown]
  - Rash [Unknown]
  - Pyrexia [Unknown]
  - Hypocalcaemia [Unknown]
  - Neurodermatitis [Unknown]
  - Autoimmune thyroiditis [Unknown]
  - Abdominal neoplasm [Unknown]
  - Gastroenteritis viral [Unknown]
  - Palmar-plantar erythrodysaesthesia syndrome [Unknown]
  - Anaemia [Unknown]
  - Reversible ischaemic neurological deficit [Unknown]
  - Myalgia [Unknown]
  - Cataract [Unknown]
  - Cardiac disorder [Unknown]
  - Chronic obstructive pulmonary disease [Unknown]
  - Lung disorder [Unknown]
  - Nephropathy [Unknown]
  - Osteoporosis [Unknown]
  - Transient ischaemic attack [Unknown]
  - Umbilical hernia [Unknown]
  - Hilar lymphadenopathy [Unknown]
  - Granuloma [Unknown]
  - Splenic granuloma [Unknown]
  - Cerebrovascular disorder [Unknown]
  - Lymphoedema [Unknown]
  - Dyspnoea exertional [Unknown]
  - Sleep apnoea syndrome [Unknown]
  - Arthralgia [Unknown]
  - Onycholysis [Unknown]
  - Headache [Recovered/Resolved]
  - Confusional state [Recovered/Resolved]
  - Swelling face [Unknown]
  - Cellulitis [Unknown]
  - Metastases to spine [Unknown]
  - Osteosclerosis [Unknown]
  - Spinal disorder [Unknown]
  - Abscess [Unknown]
  - Mitral valve calcification [Unknown]
  - Pulmonary mass [Unknown]
  - Hypoxia [Unknown]
  - Vitamin D deficiency [Unknown]
  - Osteoarthritis [Unknown]
  - Thrombocytopenia [Unknown]
  - Bronchitis [Unknown]
